FAERS Safety Report 4492026-7 (Version None)
Quarter: 2004Q4

REPORT INFORMATION
  Report Type: 
  Country: None (occurrence: None)
  Receive Date: 20041029
  Receipt Date: 20041021
  Transmission Date: 20050328
  Serious: Yes (Hospitalization)
  Sender: FDA-Public Use
  Company Number: HQWYE992322OCT04

PATIENT
  Age: 57 Year
  Sex: Female

DRUGS (7)
  1. CORDARONE [Suspect]
     Dosage: 150 MG ONE TIME GIVEN OVER A ^FEW MINUTES^
     Route: 042
     Dates: start: 20040201, end: 20040201
  2. CORDARONE [Suspect]
     Dosage: 150 MG ONE TIME GIVEN OVER A ^FEW MINUTES^
     Route: 042
     Dates: start: 20040401, end: 20040401
  3. CORDARONE [Suspect]
     Dosage: 150 MG ONE TIME GIVEN OVER A ^FEW MINUTES^
     Route: 042
     Dates: start: 20040528, end: 20040528
  4. HOLOXAN (IFOSFAMIDE) [Concomitant]
  5. ADRIBLASTIN (DOROXUBICIN HYDROCHLORIDE) [Concomitant]
  6. THEPRUBICINE (PIRARUBICIN) [Concomitant]
  7. LIPIODOL (IODIZED OIL) [Concomitant]

REACTIONS (1)
  - PARKINSONISM [None]
